FAERS Safety Report 8704733 (Version 2)
Quarter: 2013Q3

REPORT INFORMATION
  Report Type: Report from Study
  Country: US (occurrence: US)
  Receive Date: 20120803
  Receipt Date: 20130916
  Transmission Date: 20140515
  Serious: Yes (Hospitalization)
  Sender: FDA-Public Use
  Company Number: US-ACTELION-A-US2012-69345

PATIENT
  Age: 59 Year
  Sex: Male

DRUGS (1)
  1. TRACLEER [Suspect]
     Indication: PULMONARY ARTERIAL HYPERTENSION
     Dosage: UNK
     Route: 048
     Dates: start: 20070701

REACTIONS (5)
  - Venous occlusion [Recovering/Resolving]
  - Stent placement [Recovering/Resolving]
  - Central venous catheterisation [Recovering/Resolving]
  - Sympathectomy [Unknown]
  - Swelling [Recovering/Resolving]
